FAERS Safety Report 13527350 (Version 1)
Quarter: 2017Q2

REPORT INFORMATION
  Report Type: Report from Study
  Country: AR (occurrence: AR)
  Receive Date: 20170509
  Receipt Date: 20170509
  Transmission Date: 20170830
  Serious: Yes (Other)
  Sender: FDA-Public Use
  Company Number: PHHY2017AR066635

PATIENT
  Age: 65 Year
  Sex: Male

DRUGS (2)
  1. EXFORGE [Suspect]
     Active Substance: AMLODIPINE BESYLATE\VALSARTAN
     Dosage: 0.5 DF (AMLODIPINE 5, VALSARTAN 320), QD
     Route: 065
  2. EXFORGE [Suspect]
     Active Substance: AMLODIPINE BESYLATE\VALSARTAN
     Indication: HYPERTENSION
     Dosage: 1 DF (AMLODIPINE 5, VALSARTAN 320) QD
     Route: 065

REACTIONS (7)
  - Wrong technique in product usage process [Unknown]
  - Lung neoplasm malignant [Unknown]
  - Pulmonary mass [Recovering/Resolving]
  - Peripheral swelling [Unknown]
  - Blood pressure decreased [Unknown]
  - Drug prescribing error [Unknown]
  - Adrenal mass [Unknown]

NARRATIVE: CASE EVENT DATE: 201701
